FAERS Safety Report 7454832-6 (Version None)
Quarter: 2011Q2

REPORT INFORMATION
  Report Type: 
  Country: None (occurrence: None)
  Receive Date: 20110503
  Receipt Date: 20100729
  Transmission Date: 20111010
  Serious: No
  Sender: FDA-Public Use
  Company Number: US-PFIZER INC-2010096747

PATIENT

DRUGS (1)
  1. DEPO-PROVERA [Suspect]
     Dosage: FREQUENCY: CYCLIC,
     Route: 030
     Dates: start: 20080603

REACTIONS (2)
  - BURNING SENSATION [None]
  - PAIN IN EXTREMITY [None]
